FAERS Safety Report 20566045 (Version 2)
Quarter: 2022Q2

REPORT INFORMATION
  Report Type: Spontaneous
  Country: US (occurrence: US)
  Receive Date: 20220308
  Receipt Date: 20220407
  Transmission Date: 20220720
  Serious: No
  Sender: FDA-Public Use
  Company Number: US-BEH-2022142794

PATIENT
  Sex: Female

DRUGS (3)
  1. HIZENTRA [Suspect]
     Active Substance: HUMAN IMMUNOGLOBULIN G
     Indication: Chronic inflammatory demyelinating polyradiculoneuropathy
     Dosage: 20 GRAM, QW
     Route: 058
     Dates: start: 20210618
  2. DOXYCYCLINE [Concomitant]
     Active Substance: DOXYCYCLINE
  3. BENZONATATE [Concomitant]
     Active Substance: BENZONATATE

REACTIONS (2)
  - Abdominal pain [Unknown]
  - Pyrexia [Unknown]
